FAERS Safety Report 5297994-1 (Version None)
Quarter: 2007Q2

REPORT INFORMATION
  Report Type: 
  Country: None (occurrence: None)
  Receive Date: 20070416
  Receipt Date: 20070413
  Transmission Date: 20071010
  Serious: Yes (Other)
  Sender: FDA-Public Use
  Company Number: MX-BRISTOL-MYERS SQUIBB COMPANY-13746953

PATIENT
  Age: 59 Year
  Sex: Female

DRUGS (10)
  1. ABATACEPT [Suspect]
     Indication: RHEUMATOID ARTHRITIS
     Route: 042
     Dates: start: 20050411
  2. METHOTREXATE SODIUM [Suspect]
     Route: 048
     Dates: start: 20040825
  3. CAPTOPRIL [Concomitant]
     Dates: start: 20070215
  4. CHLORTHALIDONE [Concomitant]
     Dates: start: 20070215
  5. ATENOLOL [Concomitant]
     Dates: start: 20070215
  6. FOLIC ACID [Concomitant]
     Dates: start: 20040825
  7. OMEPRAZOLE [Concomitant]
     Dates: start: 20060829
  8. NIFEDIPINE [Concomitant]
     Dates: start: 20070215
  9. INDOMETHACIN [Concomitant]
     Dates: start: 20061213
  10. METFORMIN HCL [Concomitant]
     Dates: start: 20060419

REACTIONS (1)
  - PYREXIA [None]
